FAERS Safety Report 12999815 (Version 2)
Quarter: 2016Q4

REPORT INFORMATION
  Report Type: Spontaneous
  Country: BR (occurrence: BR)
  Receive Date: 20161205
  Receipt Date: 20161216
  Transmission Date: 20170207
  Serious: Yes (Hospitalization)
  Sender: FDA-Public Use
  Company Number: BR-SA-2016SA222038

PATIENT
  Age: 75 Year
  Sex: Male
  Weight: 76 kg

DRUGS (11)
  1. PANTOPRAZOLE [Concomitant]
     Active Substance: PANTOPRAZOLE SODIUM
     Indication: GASTRIC DISORDER
     Dosage: PANTOPRAZOLE 40MG
     Route: 048
     Dates: start: 20160627
  2. GLIFAGE [Concomitant]
     Active Substance: METFORMIN HYDROCHLORIDE
     Indication: TYPE 2 DIABETES MELLITUS
     Dosage: GLIFAGE? XR?(METFORMIN HYDROCHLORIDE ) 500MG
     Route: 048
     Dates: start: 20160627
  3. NOVALGIN [Concomitant]
     Active Substance: METAMIZOLE SODIUM
     Indication: CHEMOTHERAPY
     Dosage: NOVALGINA??(METAMIZOLE SODIUM) 1000MG
     Route: 048
     Dates: start: 20160627
  4. JEVTANA [Suspect]
     Active Substance: CABAZITAXEL
     Indication: PROSTATE CANCER
     Route: 042
     Dates: start: 20161010, end: 20161010
  5. JEVTANA [Suspect]
     Active Substance: CABAZITAXEL
     Indication: PROSTATE CANCER
     Dosage: DURATION:EVERY 6 CYCLES EVERY 21 DAYS
     Route: 042
     Dates: start: 20160627, end: 20160627
  6. NAUSEDRON [Concomitant]
     Active Substance: ONDANSETRON HYDROCHLORIDE
     Indication: CHEMOTHERAPY
     Dosage: NAUSEDRON? (ONDANSETRON HYDROCHLORIDE) 8MG, 1 TABLET ON THE DAY AND 3 DAYS AFTER CT
     Route: 048
     Dates: start: 20160627
  7. SIMVASTATIN. [Concomitant]
     Active Substance: SIMVASTATIN
     Indication: HYPERCHOLESTEROLAEMIA
     Dosage: SIMVASTATIN 20MG
     Route: 048
     Dates: start: 20160627
  8. EUPRESSIN [Concomitant]
     Indication: HYPERTENSION
     Dosage: EUPRESSIN??(ENALAPRIL MALEATE) 2.5MG
     Route: 048
     Dates: start: 20160627
  9. DECADRON [Concomitant]
     Active Substance: DEXAMETHASONE
     Indication: CHEMOTHERAPY
     Dosage: 1 TABLET ON THE DAY BEFORE, ON THE DAY, AND 2 DAYS AFTER CT
     Route: 048
     Dates: start: 20160627
  10. DIGESAN [Concomitant]
     Active Substance: BROMOPRIDE
     Indication: CHEMOTHERAPY
     Dosage: DIGESAN??(BROMOPRIDE) 10MG
     Route: 048
     Dates: start: 20160627
  11. PREDNISONE. [Concomitant]
     Active Substance: PREDNISONE
     Route: 048
     Dates: start: 20160627

REACTIONS (8)
  - Neutropenia [Recovered/Resolved]
  - Acute kidney injury [Recovered/Resolved]
  - Extrasystoles [Recovered/Resolved]
  - Haematuria [Recovered/Resolved]
  - Thrombosis [Recovered/Resolved]
  - Spinal pain [Recovered/Resolved]
  - Pain in extremity [Recovered/Resolved]
  - Pyrexia [Recovered/Resolved]

NARRATIVE: CASE EVENT DATE: 20161020
